FAERS Safety Report 19190669 (Version 1)
Quarter: 2021Q2

REPORT INFORMATION
  Report Type: Spontaneous
  Country: US (occurrence: US)
  Receive Date: 20210428
  Receipt Date: 20210428
  Transmission Date: 20210717
  Serious: No
  Sender: FDA-Public Use
  Company Number: US-SA-2021SA137259

PATIENT
  Sex: Male

DRUGS (12)
  1. METOPROLOL TARTRATE. [Concomitant]
     Active Substance: METOPROLOL TARTRATE
  2. FUROSEMIDE. [Concomitant]
     Active Substance: FUROSEMIDE
  3. HCTZ [Concomitant]
     Active Substance: HYDROCHLOROTHIAZIDE
  4. MULTIVITAMINS [VITAMINS NOS] [Concomitant]
     Active Substance: VITAMINS
  5. EZETIMIBE. [Concomitant]
     Active Substance: EZETIMIBE
  6. DUPIXENT [Suspect]
     Active Substance: DUPILUMAB
     Indication: ECZEMA
     Dosage: UNK
     Route: 058
     Dates: start: 20190821
  7. GLYBURIDE (MICRONIZED) [Concomitant]
     Active Substance: GLYBURIDE
  8. POTASSIUM CHLORIDE. [Concomitant]
     Active Substance: POTASSIUM CHLORIDE
  9. ASPIRIN EC [Concomitant]
     Active Substance: ASPIRIN
  10. TAMSULOSIN [Concomitant]
     Active Substance: TAMSULOSIN
  11. ARNUITY ELLIPTA [Concomitant]
     Active Substance: FLUTICASONE FUROATE
  12. JARDIANCE [Concomitant]
     Active Substance: EMPAGLIFLOZIN

REACTIONS (1)
  - Eczema [Unknown]
